FAERS Safety Report 11096194 (Version 1)
Quarter: 2015Q2

REPORT INFORMATION
  Report Type: Spontaneous
  Country: US (occurrence: None)
  Receive Date: 20150506
  Receipt Date: 20150506
  Transmission Date: 20150821
  Serious: Yes (Disabling)
  Sender: FDA-Public Use
  Company Number: None

PATIENT
  Age: 56 Year
  Sex: Female
  Weight: 58.51 kg

DRUGS (12)
  1. ESTRACE [Concomitant]
     Active Substance: ESTRADIOL
  2. FLEXERIL [Concomitant]
     Active Substance: CYCLOBENZAPRINE HYDROCHLORIDE
  3. TRAZODONE, 50MG?V [Suspect]
     Active Substance: TRAZODONE HYDROCHLORIDE
     Indication: SLEEP DISORDER
     Dosage: 1-2 PRN FOR SLEEP, ONCE DAILY, TAKEN BY MOUTH
     Route: 048
     Dates: start: 20150501, end: 20150503
  4. VALTREX [Concomitant]
     Active Substance: VALACYCLOVIR HYDROCHLORIDE
  5. PROMETRIUM ORAL [Concomitant]
  6. SUDAFED [Concomitant]
     Active Substance: PSEUDOEPHEDRINE HYDROCHLORIDE
  7. GENERIC SPIRONOLACTONE [Concomitant]
  8. MULTI VITAMIN [Concomitant]
     Active Substance: VITAMINS
  9. CYMBALTA [Concomitant]
     Active Substance: DULOXETINE HYDROCHLORIDE
  10. CALCIUM CITRATE [Concomitant]
     Active Substance: CALCIUM CITRATE
  11. FISH OIL [Concomitant]
     Active Substance: FISH OIL
  12. VITAMIN D [Concomitant]
     Active Substance: CHOLECALCIFEROL

REACTIONS (9)
  - Depression [None]
  - Migraine [None]
  - Thinking abnormal [None]
  - Drug ineffective [None]
  - Poor quality sleep [None]
  - Feeling of despair [None]
  - Middle insomnia [None]
  - Drug interaction [None]
  - Suicidal ideation [None]

NARRATIVE: CASE EVENT DATE: 20150501
